FAERS Safety Report 7471335-3 (Version None)
Quarter: 2011Q2

REPORT INFORMATION
  Report Type: 
  Country: None (occurrence: None)
  Receive Date: 20110510
  Receipt Date: 20110502
  Transmission Date: 20111010
  Serious: Yes (Disabling, Other)
  Sender: FDA-Public Use
  Company Number: US-MERCK-1012USA01617

PATIENT
  Age: 62 Year
  Sex: Female
  Weight: 86 kg

DRUGS (6)
  1. FOSAMAX PLUS D [Suspect]
     Indication: OSTEOPOROSIS
     Route: 048
     Dates: start: 20051025
  2. FOSAMAX [Suspect]
     Indication: OSTEOPOROSIS
     Route: 048
     Dates: start: 20011204, end: 20080101
  3. FOSAMAX [Suspect]
     Indication: OSTEOPENIA
     Route: 048
     Dates: start: 20011204, end: 20080101
  4. OS-CAL [Concomitant]
     Route: 065
  5. ZOCOR [Concomitant]
     Indication: BLOOD CHOLESTEROL INCREASED
     Route: 048
  6. FOSAMAX PLUS D [Suspect]
     Indication: OSTEOPENIA
     Route: 048
     Dates: start: 20051025

REACTIONS (48)
  - MALIGNANT MELANOMA [None]
  - INJURY ASSOCIATED WITH DEVICE [None]
  - DEPRESSION [None]
  - DYSGEUSIA [None]
  - FATIGUE [None]
  - ANGIOPATHY [None]
  - MYOCARDIAL ISCHAEMIA [None]
  - MALAISE [None]
  - DENTAL PLAQUE [None]
  - SKIN CANCER [None]
  - ANGIOEDEMA [None]
  - INSOMNIA [None]
  - FLUID RETENTION [None]
  - PRURITUS [None]
  - PERIPHERAL VASCULAR DISORDER [None]
  - DERMATITIS CONTACT [None]
  - BLOOD PRESSURE INADEQUATELY CONTROLLED [None]
  - CHEST DISCOMFORT [None]
  - OSTEOARTHRITIS [None]
  - VENTRICULAR EXTRASYSTOLES [None]
  - ARTHROPOD BITE [None]
  - SKIN LESION [None]
  - MUSCLE STRAIN [None]
  - ADVERSE DRUG REACTION [None]
  - MYOCARDIAL INFARCTION [None]
  - HYPERLIPIDAEMIA [None]
  - MIGRAINE [None]
  - JOINT INJURY [None]
  - HYPERTRIGLYCERIDAEMIA [None]
  - HYPERCHOLESTEROLAEMIA [None]
  - CHEST PAIN [None]
  - OSTEONECROSIS OF JAW [None]
  - ANXIETY [None]
  - INTERVERTEBRAL DISC DEGENERATION [None]
  - PAIN IN EXTREMITY [None]
  - ARTHRALGIA [None]
  - ULCER [None]
  - TINEA VERSICOLOUR [None]
  - JAW DISORDER [None]
  - FALL [None]
  - HYPERCALCAEMIA [None]
  - PALPITATIONS [None]
  - HERPES ZOSTER [None]
  - MYALGIA [None]
  - MENISCUS LESION [None]
  - SCOLIOSIS [None]
  - MASS [None]
  - LIP SWELLING [None]
